FAERS Safety Report 9380953 (Version 1)
Quarter: 2013Q3

REPORT INFORMATION
  Report Type: Report from Study
  Country: GB (occurrence: GB)
  Receive Date: 20130703
  Receipt Date: 20130703
  Transmission Date: 20140515
  Serious: Yes (Other)
  Sender: FDA-Public Use
  Company Number: GB-ROCHE-1244061

PATIENT
  Sex: Male
  Weight: 119 kg

DRUGS (2)
  1. RITUXIMAB [Suspect]
     Indication: RHEUMATOID ARTHRITIS
     Dosage: DATE OF LAST DOSE PRIOR TO SAE WAS ON 27/FEB/2013
     Route: 065
     Dates: start: 20090708
  2. METHOTREXATE [Concomitant]

REACTIONS (1)
  - Pneumothorax [Unknown]
